FAERS Safety Report 17951925 (Version 1)
Quarter: 2020Q2

REPORT INFORMATION
  Report Type: Spontaneous
  Country: GB (occurrence: GB)
  Receive Date: 20200626
  Receipt Date: 20200626
  Transmission Date: 20200714
  Serious: Yes (Life-Threatening, Hospitalization, Other)
  Sender: FDA-Public Use
  Company Number: GB-BRISTOL-MYERS SQUIBB COMPANY-BMS-2020-047573

PATIENT
  Age: 62 Year
  Sex: Female
  Weight: 52.4 kg

DRUGS (4)
  1. OMEPRAZOLE. [Concomitant]
     Active Substance: OMEPRAZOLE
     Indication: PRODUCT USED FOR UNKNOWN INDICATION
     Dosage: UNK
     Route: 065
  2. BARICITINIB [Suspect]
     Active Substance: BARICITINIB
     Indication: RHEUMATOID ARTHRITIS
     Dosage: 4 MILLIGRAM, PER DAY
     Route: 048
     Dates: start: 20200323, end: 20200420
  3. HYDROXYUREA. [Suspect]
     Active Substance: HYDROXYUREA
     Indication: MYELOPROLIFERATIVE NEOPLASM
     Dosage: 1.5G MONDAY-FRIDAY AND 1G SATURDAY-SUNDAY, RESTARTED AT 500MG DAILY.
     Route: 065
     Dates: start: 201911, end: 20200420
  4. ACETYLSALICYLIC ACID [Concomitant]
     Active Substance: ASPIRIN
     Indication: PRODUCT USED FOR UNKNOWN INDICATION
     Dosage: UNK
     Route: 065

REACTIONS (6)
  - Pancytopenia [Recovered/Resolved]
  - Asthenia [Unknown]
  - Malaise [Unknown]
  - Off label use [Unknown]
  - Fatigue [Unknown]
  - Anaemia [Recovered/Resolved]

NARRATIVE: CASE EVENT DATE: 20200420
